FAERS Safety Report 12436887 (Version 1)
Quarter: 2016Q2

REPORT INFORMATION
  Report Type: Spontaneous
  Country: US (occurrence: None)
  Receive Date: 20160603
  Receipt Date: 20160603
  Transmission Date: 20160815
  Serious: Yes (Disabling)
  Sender: FDA-Public Use
  Company Number: None

PATIENT
  Age: 49 Year
  Sex: Female
  Weight: 45.36 kg

DRUGS (9)
  1. B-2 [Concomitant]
  2. C [Concomitant]
  3. FISH OIL [Concomitant]
     Active Substance: FISH OIL
  4. BACLOFEN, 10 MG [Suspect]
     Active Substance: BACLOFEN
     Indication: MUSCLE TIGHTNESS
     Route: 048
  5. CLONZAPAM [Concomitant]
  6. L-METHYL FOLATE [Concomitant]
  7. D [Concomitant]
  8. LYRICA [Concomitant]
     Active Substance: PREGABALIN
  9. PROBIOTIC [Concomitant]
     Active Substance: PROBIOTICS NOS

REACTIONS (6)
  - Facial pain [None]
  - Migraine [None]
  - Anxiety [None]
  - Muscle twitching [None]
  - Decreased appetite [None]
  - Diarrhoea [None]
